FAERS Safety Report 19697418 (Version 1)
Quarter: 2021Q3

REPORT INFORMATION
  Report Type: Spontaneous
  Country: HR (occurrence: HR)
  Receive Date: 20210813
  Receipt Date: 20210813
  Transmission Date: 20211014
  Serious: Yes (Hospitalization)
  Sender: FDA-Public Use
  Company Number: HR-ASTRAZENECA-2021A670552

PATIENT
  Age: 72 Year
  Sex: Male
  Weight: 84 kg

DRUGS (19)
  1. FASENRA [Suspect]
     Active Substance: BENRALIZUMAB
     Indication: ASTHMA
     Route: 058
     Dates: start: 20181114, end: 20210428
  2. EPRI [Concomitant]
     Active Substance: ROSUVASTATIN CALCIUM
     Route: 048
  3. GASTAL [Concomitant]
     Active Substance: ALUMINUM HYDROXIDE - MAGNESIUM CARBONATE, CO-DRIED GEL\MAGNESIUM HYDROXIDE
     Indication: GASTROOESOPHAGEAL REFLUX DISEASE
     Dosage: 1 DF= 450 MG ALUMINIJEV HIDROKSID?MAGNEZIJEV KARBONAT GELA + 300 MG MAGNEZIJEVOG HIDROKSIDA
     Route: 048
  4. VITAMIN D [Concomitant]
     Active Substance: VITAMIN D NOS
  5. SIOFOR [Concomitant]
     Active Substance: METFORMIN HYDROCHLORIDE
     Indication: DIABETES MELLITUS
  6. SPIRIVA RESPIMAT [Concomitant]
     Active Substance: TIOTROPIUM BROMIDE
     Indication: ASPIRIN-EXACERBATED RESPIRATORY DISEASE
     Dosage: 2 UDAHA2.5UG/INHAL
     Route: 055
  7. AVAMYS [Concomitant]
     Active Substance: FLUTICASONE FUROATE
     Dosage: 27.5UG/INHAL
     Route: 045
  8. XARELTO [Concomitant]
     Active Substance: RIVAROXABAN
     Indication: AORTIC VALVE STENOSIS
     Route: 048
  9. EBRANTIL [Concomitant]
     Active Substance: URAPIDIL
     Indication: HYPERTENSION
     Route: 048
  10. FOSTER [Concomitant]
     Active Substance: BECLOMETHASONE\FORMOTEROL
     Indication: ASPIRIN-EXACERBATED RESPIRATORY DISEASE
     Dosage: 3X2 UDAHA ; TIME INTERVAL:
     Route: 055
  11. GARDIN [Concomitant]
     Route: 048
  12. XARELTO [Concomitant]
     Active Substance: RIVAROXABAN
     Indication: ACUTE MYOCARDIAL INFARCTION
     Route: 048
  13. TINIDIL [Concomitant]
     Active Substance: ISOSORBIDE DINITRATE
     Dosage: PP
     Route: 060
  14. NORPREXANIL [Concomitant]
     Active Substance: UNSPECIFIED INGREDIENT
     Indication: HYPERTENSION
     Dosage: 1 DF= 5 MG PERINDOPRILARGININA + 5 MG AMLODIPINA
     Route: 048
  15. CORDARONE [Concomitant]
     Active Substance: AMIODARONE HYDROCHLORIDE
     Route: 048
  16. SPIRIVA RESPIMAT [Concomitant]
     Active Substance: TIOTROPIUM BROMIDE
     Indication: ASTHMA
     Dosage: 2 UDAHA2.5UG/INHAL
     Route: 055
  17. NEBILET [Concomitant]
     Active Substance: NEBIVOLOL
     Indication: HYPERTENSION
     Route: 048
  18. NEXIUM [Concomitant]
     Active Substance: ESOMEPRAZOLE MAGNESIUM
     Indication: GASTROOESOPHAGEAL REFLUX DISEASE
     Dosage: 1X1
     Route: 048
  19. FOSTER [Concomitant]
     Active Substance: BECLOMETHASONE\FORMOTEROL
     Indication: ASTHMA
     Dosage: 3X2 UDAHA ; TIME INTERVAL:
     Route: 055

REACTIONS (1)
  - Squamous cell carcinoma of lung [Recovered/Resolved with Sequelae]

NARRATIVE: CASE EVENT DATE: 20210428
